FAERS Safety Report 17364844 (Version 1)
Quarter: 2020Q1

REPORT INFORMATION
  Report Type: Report from Study
  Country: TR (occurrence: TR)
  Receive Date: 20200204
  Receipt Date: 20200204
  Transmission Date: 20200409
  Serious: Yes (Death)
  Sender: FDA-Public Use
  Company Number: TR-TEVA-2020-TR-1178731

PATIENT

DRUGS (5)
  1. CARBOPLATIN. [Suspect]
     Active Substance: CARBOPLATIN
     Indication: NON-SMALL CELL LUNG CANCER METASTATIC
     Dosage: CARBOPLATIN AUC 2 (GIVEN AFTER PACLITAXEL ADMINISTRATION, OVER 30 MINUTES) ON DAYS 1 AND 8 OF EVE...
     Route: 065
  2. PALONOSETRON HYDROCHLORIDE. [Concomitant]
     Active Substance: PALONOSETRON HYDROCHLORIDE
     Indication: PREMEDICATION
     Route: 065
  3. PACLITAXEL. [Suspect]
     Active Substance: PACLITAXEL
     Indication: NON-SMALL CELL LUNG CANCER METASTATIC
     Dosage: OVER 60 MINUTES ON DAYS 1 AND 8 OF EVERY 3-WEEK CYCLE AS FIRST-LINE TREATMENT. PLANNED FOR 8 CYCLES.
     Route: 065
  4. PHENIRAMINE MALEATE [Concomitant]
     Active Substance: PHENIRAMINE MALEATE
     Indication: PREMEDICATION
     Route: 065
  5. HUMULIN R [Concomitant]
     Active Substance: INSULIN HUMAN
     Indication: PREMEDICATION
     Dosage: IN DOSES RANGING BETWEEN 5 AND 20 IU
     Route: 065

REACTIONS (1)
  - Neutropenia [Fatal]
